FAERS Safety Report 9882164 (Version 1)
Quarter: 2014Q1

REPORT INFORMATION
  Report Type: Spontaneous
  Country: DE (occurrence: DE)
  Receive Date: 20140207
  Receipt Date: 20140207
  Transmission Date: 20141002
  Serious: Yes (Congenital Anomaly, Other)
  Sender: FDA-Public Use
  Company Number: DE-WATSON-2014-01647

PATIENT
  Age: 1 Day
  Sex: Female
  Weight: 4 kg

DRUGS (2)
  1. MIRTAZAPINE (UNKNOWN) [Suspect]
     Indication: SLEEP DISORDER
     Dosage: 7.5 MG, DAILY
     Route: 064
     Dates: start: 20120509, end: 20120629
  2. FOLIO [Concomitant]
     Indication: PROPHYLAXIS OF NEURAL TUBE DEFECT
     Dosage: 0.4 MG, DAILY
     Route: 064
     Dates: start: 20120325

REACTIONS (3)
  - Pulmonary valve stenosis congenital [Not Recovered/Not Resolved]
  - Atrial septal defect [Not Recovered/Not Resolved]
  - Foetal exposure during pregnancy [Not Recovered/Not Resolved]
